FAERS Safety Report 6743596-7 (Version None)
Quarter: 2010Q2

REPORT INFORMATION
  Report Type: 
  Country: None (occurrence: None)
  Receive Date: 20100527
  Receipt Date: 20100514
  Transmission Date: 20101027
  Serious: Yes (Other)
  Sender: FDA-Public Use
  Company Number: US-JNJFOC-20100507235

PATIENT
  Age: 3 Year
  Sex: Male

DRUGS (3)
  1. CHILDREN'S TYLENOL SUSPENSION [Suspect]
  2. CHILDREN'S TYLENOL SUSPENSION [Suspect]
     Indication: PYREXIA
  3. ZYRTEC [Suspect]
     Indication: MULTIPLE ALLERGIES

REACTIONS (2)
  - AUTISM [None]
  - PRODUCT CONTAMINATION PHYSICAL [None]
